FAERS Safety Report 18584224 (Version 1)
Quarter: 2020Q4

REPORT INFORMATION
  Report Type: Spontaneous
  Country: FR (occurrence: FR)
  Receive Date: 20201207
  Receipt Date: 20201207
  Transmission Date: 20210114
  Serious: Yes (Other)
  Sender: FDA-Public Use
  Company Number: FR-TEVA-2020-FR-1854748

PATIENT
  Age: 71 Year
  Sex: Female
  Weight: 57 kg

DRUGS (14)
  1. NOVORAPID [Concomitant]
     Active Substance: INSULIN ASPART
     Dates: start: 20200317
  2. VENLAFAXINE [Concomitant]
     Active Substance: VENLAFAXINE HYDROCHLORIDE
     Dosage: UNIT DOSE : 75 MG
     Route: 048
     Dates: start: 20200317
  3. HYDROXYZINE (CHLORHYDRATE D) [Concomitant]
     Active Substance: HYDROXYZINE HYDROCHLORIDE
     Dosage: UNIT DOSE : 25 MG
     Dates: start: 20181015
  4. LOVENOX [Concomitant]
     Active Substance: ENOXAPARIN SODIUM
     Dosage: UNIT DOSE : 4000 IU
     Dates: start: 20201101
  5. ROSUVASTATINE [Concomitant]
     Active Substance: ROSUVASTATIN
     Dosage: UNIT DOSE : 5 MG
     Dates: start: 20181211
  6. PANTOPRAZOLE [Suspect]
     Active Substance: PANTOPRAZOLE
     Indication: PRODUCT USED FOR UNKNOWN INDICATION
     Dosage: UNIT DOSE : 20 MG
     Route: 048
     Dates: start: 20201101, end: 20201103
  7. METOCLOPRAMIDE. [Concomitant]
     Active Substance: METOCLOPRAMIDE
     Dosage: UNIT DOSE : 30 MG
     Route: 048
  8. ZYMAD [Concomitant]
     Active Substance: CHOLECALCIFEROL
     Dosage: UNIT DOSE : 50000 IU
     Dates: start: 201807
  9. PARACETAMOL [Concomitant]
     Active Substance: ACETAMINOPHEN
     Dates: start: 201808
  10. ABASAGLAR [Concomitant]
     Active Substance: INSULIN GLARGINE
     Dosage: UNIT DOSE : 12 IU
     Dates: start: 20200317
  11. PERINDOPRIL TERT-BUTYLAMINE [Concomitant]
     Active Substance: PERINDOPRIL ERBUMINE
     Dosage: UNIT DOSE : 4 MG
     Dates: start: 20200317
  12. CREON [Concomitant]
     Active Substance: PANCRELIPASE AMYLASE\PANCRELIPASE LIPASE\PANCRELIPASE PROTEASE
     Route: 048
     Dates: start: 20181211
  13. ESOMEPRAZOLE. [Concomitant]
     Active Substance: ESOMEPRAZOLE MAGNESIUM
     Dosage: UNIT DOSE : 20 MG
     Route: 048
     Dates: start: 20200317, end: 20201101
  14. KARDEGIC [Concomitant]
     Active Substance: ASPIRIN DL-LYSINE
     Dates: start: 20181211, end: 20201103

REACTIONS (1)
  - Neutropenia [Recovering/Resolving]

NARRATIVE: CASE EVENT DATE: 20201102
